FAERS Safety Report 17191168 (Version 1)
Quarter: 2019Q4

REPORT INFORMATION
  Report Type: Spontaneous
  Country: US (occurrence: US)
  Receive Date: 20191220
  Receipt Date: 20191220
  Transmission Date: 20200122
  Serious: Yes (Disabling)
  Sender: FDA-Public Use
  Company Number: None

PATIENT
  Age: 51 Year
  Sex: Female
  Weight: 84.15 kg

DRUGS (10)
  1. LOPRESSOR [Concomitant]
     Active Substance: METOPROLOL TARTRATE
  2. METFORMIN [Concomitant]
     Active Substance: METFORMIN HYDROCHLORIDE
  3. MULTI VITAMIN [Concomitant]
     Active Substance: VITAMINS
  4. NEURONTIN [Concomitant]
     Active Substance: GABAPENTIN
  5. TIROSINT [Concomitant]
     Active Substance: LEVOTHYROXINE SODIUM
  6. WELLBUTRIN [Concomitant]
     Active Substance: BUPROPION HYDROCHLORIDE
  7. MULTIHANCE [Suspect]
     Active Substance: GADOBENATE DIMEGLUMINE
     Indication: MAGNETIC RESONANCE IMAGING
  8. PANTOPRAZOLE [Concomitant]
     Active Substance: PANTOPRAZOLE
  9. ZOLOFT [Concomitant]
     Active Substance: SERTRALINE HYDROCHLORIDE
  10. ASPIRIN. [Concomitant]
     Active Substance: ASPIRIN

REACTIONS (5)
  - Arthralgia [None]
  - Gadolinium deposition disease [None]
  - Skin lesion [None]
  - Central nervous system lesion [None]
  - Vertigo [None]

NARRATIVE: CASE EVENT DATE: 20190917
